FAERS Safety Report 9377901 (Version 1)
Quarter: 2013Q3

REPORT INFORMATION
  Report Type: Spontaneous
  Country: BR (occurrence: BR)
  Receive Date: 20130701
  Receipt Date: 20130701
  Transmission Date: 20140515
  Serious: Yes (Disabling, Other)
  Sender: FDA-Public Use
  Company Number: PHHY2013BR065218

PATIENT
  Age: 73 Year
  Sex: Female

DRUGS (2)
  1. HYDERGINE [Suspect]
     Indication: CEREBRAL DISORDER
     Dosage: 1 DF (4.5MG), QD (AT NIGHT)
     Route: 048
  2. NIMODIPINE [Suspect]
     Dosage: 30 MG, UNK

REACTIONS (6)
  - Fall [Recovered/Resolved]
  - Balance disorder [Unknown]
  - Limb injury [Recovered/Resolved]
  - Skin discolouration [Recovered/Resolved]
  - Erythema [Recovered/Resolved]
  - Dizziness [Recovered/Resolved]
